FAERS Safety Report 7936156-3 (Version None)
Quarter: 2011Q4

REPORT INFORMATION
  Report Type: 
  Country: None (occurrence: None)
  Receive Date: 20111123
  Receipt Date: 20111111
  Transmission Date: 20120403
  Serious: Yes (Other)
  Sender: FDA-Public Use
  Company Number: DK-JNJFOC-20111109166

PATIENT
  Sex: Female

DRUGS (3)
  1. PALEXIA DEPOT [Suspect]
     Indication: PAIN
     Route: 048
     Dates: start: 20110716
  2. ACETAMINOPHEN [Concomitant]
     Indication: PAIN
     Route: 065
  3. DICLOFENAC SODIUM [Suspect]
     Indication: PAIN
     Route: 048

REACTIONS (1)
  - VITREOUS DETACHMENT [None]
